FAERS Safety Report 10611885 (Version 1)
Quarter: 2014Q4

REPORT INFORMATION
  Report Type: Spontaneous
  Country: HR (occurrence: HR)
  Receive Date: 20141126
  Receipt Date: 20141126
  Transmission Date: 20150529
  Serious: Yes (Death, Hospitalization)
  Sender: FDA-Public Use
  Company Number: PHHY2014HR150991

PATIENT
  Age: 66 Year
  Sex: Male

DRUGS (3)
  1. VANCOMYCIN [Suspect]
     Active Substance: VANCOMYCIN
     Indication: PRODUCT USED FOR UNKNOWN INDICATION
     Route: 065
  2. LINEZOLID. [Suspect]
     Active Substance: LINEZOLID
     Indication: PRODUCT USED FOR UNKNOWN INDICATION
     Route: 065
  3. MEROPENEM. [Suspect]
     Active Substance: MEROPENEM
     Indication: PRODUCT USED FOR UNKNOWN INDICATION
     Route: 065

REACTIONS (14)
  - Organ failure [Unknown]
  - Purpura [Unknown]
  - Shock [Unknown]
  - Anuria [Unknown]
  - Coma [Unknown]
  - Death [Fatal]
  - Toxic epidermal necrolysis [Unknown]
  - General physical health deterioration [Unknown]
  - Drug ineffective [Unknown]
  - Skin lesion [Unknown]
  - Petechiae [Unknown]
  - Blister [Unknown]
  - Rash [Unknown]
  - Macule [Unknown]
